FAERS Safety Report 4676446-3 (Version None)
Quarter: 2005Q2

REPORT INFORMATION
  Report Type: 
  Country: None (occurrence: None)
  Receive Date: 20050527
  Receipt Date: 20050407
  Transmission Date: 20051028
  Serious: Yes (Other)
  Sender: FDA-Public Use
  Company Number: US-JNJFOC-20050506717

PATIENT
  Age: 39 Year
  Sex: Female
  Weight: 49.9 kg

DRUGS (2)
  1. MS TYLENOL SORE THROAT HONEY LEMON [Suspect]
     Route: 049
  2. MS TYLENOL SORE THROAT HONEY LEMON [Suspect]
     Route: 049

REACTIONS (4)
  - ASTHMA [None]
  - FEELING ABNORMAL [None]
  - HYPERSENSITIVITY [None]
  - PARAESTHESIA MUCOSAL [None]
